FAERS Safety Report 9660164 (Version 1)
Quarter: 2013Q4

REPORT INFORMATION
  Report Type: Spontaneous
  Country: CA (occurrence: CA)
  Receive Date: 20131031
  Receipt Date: 20131031
  Transmission Date: 20140711
  Serious: Yes (Hospitalization)
  Sender: FDA-Public Use
  Company Number: CA-ROCHE-1296424

PATIENT
  Age: 87 Year
  Sex: Male

DRUGS (8)
  1. CEFTRIAXONE [Suspect]
     Indication: PRODUCT USED FOR UNKNOWN INDICATION
     Route: 065
  2. CASODEX [Suspect]
     Indication: PRODUCT USED FOR UNKNOWN INDICATION
     Route: 048
  3. PIPERACILLIN/TAZOBACTAM [Suspect]
     Indication: PRODUCT USED FOR UNKNOWN INDICATION
     Route: 042
  4. ZITHROMAX [Suspect]
     Indication: PRODUCT USED FOR UNKNOWN INDICATION
     Route: 048
  5. ASPIRIN [Concomitant]
  6. DOCUSATE [Concomitant]
  7. SENOKOT [Concomitant]
  8. TYLENOL [Concomitant]

REACTIONS (2)
  - Drug ineffective [Unknown]
  - Organising pneumonia [Not Recovered/Not Resolved]
